FAERS Safety Report 20623049 (Version 2)
Quarter: 2022Q3

REPORT INFORMATION
  Report Type: Report from Study
  Country: US (occurrence: US)
  Receive Date: 20220322
  Receipt Date: 20220810
  Transmission Date: 20221027
  Serious: Yes (Hospitalization, Other)
  Sender: FDA-Public Use
  Company Number: US-TAKEDA-2022TUS017639

PATIENT
  Sex: Male

DRUGS (4)
  1. TEDUGLUTIDE [Suspect]
     Active Substance: TEDUGLUTIDE
     Indication: Short-bowel syndrome
     Dosage: 0.520 MILLILITER, QD
     Route: 050
     Dates: start: 20201016
  2. TEDUGLUTIDE [Suspect]
     Active Substance: TEDUGLUTIDE
     Indication: Short-bowel syndrome
     Dosage: 0.520 MILLILITER, QD
     Route: 050
     Dates: start: 20201016
  3. TEDUGLUTIDE [Suspect]
     Active Substance: TEDUGLUTIDE
     Indication: Short-bowel syndrome
     Dosage: 0.520 MILLILITER, QD
     Route: 050
     Dates: start: 20201016
  4. TEDUGLUTIDE [Suspect]
     Active Substance: TEDUGLUTIDE
     Indication: Short-bowel syndrome
     Dosage: 0.520 MILLILITER, QD
     Route: 050
     Dates: start: 20201016

REACTIONS (3)
  - Toxicity to various agents [Unknown]
  - Intestinal obstruction [Recovered/Resolved]
  - Weight decreased [Unknown]
